FAERS Safety Report 15394237 (Version 1)
Quarter: 2018Q3

REPORT INFORMATION
  Report Type: Report from Study
  Country: PH (occurrence: PH)
  Receive Date: 20180918
  Receipt Date: 20180918
  Transmission Date: 20181010
  Serious: Yes (Death, Other)
  Sender: FDA-Public Use
  Company Number: PH-SUN PHARMACEUTICAL INDUSTRIES LTD-2018US-184590

PATIENT
  Sex: Male

DRUGS (5)
  1. MUCOSTA [Suspect]
     Active Substance: REBAMIPIDE
     Indication: PRODUCT USED FOR UNKNOWN INDICATION
     Route: 065
  2. ALDACTONE [Suspect]
     Active Substance: SPIRONOLACTONE
     Indication: HYPERVOLAEMIA
     Dosage: UNK
     Route: 065
  3. TICARCILLIN [Suspect]
     Active Substance: TICARCILLIN
     Indication: PRODUCT USED FOR UNKNOWN INDICATION
     Dosage: UNK
     Route: 065
  4. FUROSEMIDE. [Suspect]
     Active Substance: FUROSEMIDE
     Indication: HYPOVOLAEMIA
     Dosage: UNK UNK, QOD
     Route: 065
  5. AMINOLEBAN EN POWDER [Suspect]
     Active Substance: AMINO ACIDS
     Indication: HEPATIC STEATOSIS
     Route: 048

REACTIONS (5)
  - Atrial tachycardia [Unknown]
  - Death [Fatal]
  - Nephrolithiasis [Unknown]
  - Cardiac failure congestive [Unknown]
  - Hepatic cirrhosis [Unknown]

NARRATIVE: CASE EVENT DATE: 20180619
